FAERS Safety Report 5601699-4 (Version None)
Quarter: 2008Q1

REPORT INFORMATION
  Report Type: 
  Country: None (occurrence: None)
  Receive Date: 20080124
  Receipt Date: 20080116
  Transmission Date: 20080703
  Serious: Yes (Hospitalization)
  Sender: FDA-Public Use
  Company Number: US-GILEAD-2008-0015014

PATIENT
  Sex: Male
  Weight: 98.064 kg

DRUGS (10)
  1. LETAIRIS [Suspect]
     Indication: PULMONARY HYPERTENSION
     Route: 048
     Dates: start: 20071217, end: 20071228
  2. LASIX [Concomitant]
     Route: 048
  3. COUMADIN [Concomitant]
     Route: 048
  4. ATENOLOL [Concomitant]
     Route: 048
  5. OXYGEN [Concomitant]
     Route: 055
  6. CIPROFLOXACIN [Concomitant]
     Route: 048
  7. IRON [Concomitant]
     Route: 048
  8. FISH OIL [Concomitant]
     Route: 048
  9. DULCOLAX [Concomitant]
     Route: 048
  10. SENNA [Concomitant]
     Route: 048

REACTIONS (5)
  - BLOOD POTASSIUM ABNORMAL [None]
  - CARDIAC FAILURE CONGESTIVE [None]
  - DYSPNOEA [None]
  - FLUID OVERLOAD [None]
  - RENAL FAILURE [None]
